FAERS Safety Report 13404498 (Version 1)
Quarter: 2017Q2

REPORT INFORMATION
  Report Type: Spontaneous
  Country: US (occurrence: US)
  Receive Date: 20170405
  Receipt Date: 20170405
  Transmission Date: 20170830
  Serious: No
  Sender: FDA-Public Use
  Company Number: US-PERRIGO-16US016605

PATIENT
  Sex: Male
  Weight: 87.53 kg

DRUGS (3)
  1. TAMSULOSIN HCL [Concomitant]
     Active Substance: TAMSULOSIN
     Indication: POLLAKIURIA
     Dosage: UNKNOWN, UNKNOWN
     Route: 065
     Dates: start: 201601, end: 20160504
  2. TOLTERODINE TARTRATE. [Concomitant]
     Active Substance: TOLTERODINE TARTRATE
     Indication: POLLAKIURIA
     Dosage: UNKNOWN, UNKNOWN
     Route: 065
     Dates: start: 201601, end: 20160504
  3. ACETAMINOPHEN. [Suspect]
     Active Substance: ACETAMINOPHEN
     Indication: ARTHRITIS
     Dosage: 650 MG, 1 TO 2 TIMES DAILY
     Route: 048
     Dates: start: 2015, end: 20160504

REACTIONS (3)
  - Rash [Recovered/Resolved]
  - Incorrect drug administration duration [Recovered/Resolved]
  - Underdose [Recovered/Resolved]

NARRATIVE: CASE EVENT DATE: 2015
